FAERS Safety Report 8826142 (Version 1)
Quarter: 2012Q4

REPORT INFORMATION
  Report Type: 
  Country: US (occurrence: US)
  Receive Date: 20121008
  Receipt Date: 20121008
  Transmission Date: 20130627
  Serious: Yes (Other)
  Sender: FDA-Public Use
  Company Number: US-JNJFOC-20120911890

PATIENT

DRUGS (21)
  1. FENTANYL [Suspect]
     Indication: ABDOMINAL PAIN
     Route: 062
  2. FENTANYL [Suspect]
     Indication: ABDOMINAL PAIN
     Route: 062
  3. FENTANYL [Suspect]
     Indication: ABDOMINAL PAIN
     Route: 062
  4. FENTANYL [Suspect]
     Indication: ABDOMINAL PAIN
     Route: 062
  5. FENTANYL [Suspect]
     Indication: ABDOMINAL PAIN
     Route: 062
  6. HYDROMORPHONE [Suspect]
     Indication: NARCOTIC BOWEL SYNDROME
     Route: 041
  7. BENZODIAZEPINE [Suspect]
     Indication: ANXIETY
     Route: 065
  8. MORPHINE [Suspect]
     Indication: NARCOTIC BOWEL SYNDROME
     Route: 041
  9. MORPHINE [Suspect]
     Indication: NARCOTIC BOWEL SYNDROME
     Dosage: 10-22 mg
     Route: 041
  10. MORPHINE [Suspect]
     Indication: NARCOTIC BOWEL SYNDROME
     Dosage: 23-37 mg
     Route: 041
  11. MORPHINE [Suspect]
     Indication: NARCOTIC BOWEL SYNDROME
     Dosage: 38-52 mg
     Route: 041
  12. MORPHINE [Suspect]
     Indication: NARCOTIC BOWEL SYNDROME
     Dosage: 53-67 mg
     Route: 041
  13. DESIPRAMINE [Suspect]
     Indication: PAIN MANAGEMENT
     Dosage: 25-150 mg/qhs
     Route: 065
  14. DESIPRAMINE [Suspect]
     Indication: ANTIDEPRESSANT THERAPY
     Dosage: 25-150 mg/qhs
     Route: 065
  15. NORTRIPTYLINE [Suspect]
     Indication: PAIN MANAGEMENT
     Dosage: 25-150 mg/qhs
     Route: 065
  16. NORTRIPTYLINE [Suspect]
     Indication: ANTIDEPRESSANT THERAPY
     Dosage: 25-150 mg/qhs
     Route: 065
  17. DULOXETINE [Suspect]
     Indication: PAIN MANAGEMENT
     Dosage: 30-90mg/qd
     Route: 065
  18. DULOXETINE [Suspect]
     Indication: ANTIDEPRESSANT THERAPY
     Dosage: 30-90mg/qd
     Route: 065
  19. CLONIDINE [Suspect]
     Indication: WITHDRAWAL SYNDROME
     Dosage: 30-90mg/qd
     Route: 048
  20. QUETIAPINE [Suspect]
     Indication: PAIN MANAGEMENT
     Dosage: 30-90mg/qd
     Route: 065
  21. MIRTAZAPINA [Suspect]
     Indication: NAUSEA
     Route: 065

REACTIONS (12)
  - Narcotic bowel syndrome [Unknown]
  - Withdrawal syndrome [Unknown]
  - Piloerection [Unknown]
  - Anxiety [Unknown]
  - Nausea [Unknown]
  - Headache [Unknown]
  - Insomnia [Unknown]
  - Abdominal pain [Unknown]
  - Myalgia [Unknown]
  - Chills [Unknown]
  - Vomiting [Unknown]
  - Diarrhoea [Unknown]
